FAERS Safety Report 5289676-7 (Version None)
Quarter: 2007Q2

REPORT INFORMATION
  Report Type: 
  Country: None (occurrence: None)
  Receive Date: 20070406
  Receipt Date: 20070402
  Transmission Date: 20071010
  Serious: Yes (Death)
  Sender: FDA-Public Use
  Company Number: FR-AVENTIS-200711183FR

PATIENT
  Age: 81 Year
  Sex: Male

DRUGS (6)
  1. LASILIX                            /00032601/ [Suspect]
     Indication: DRUG USE FOR UNKNOWN INDICATION
     Route: 042
     Dates: start: 20070317
  2. LOVENOX [Suspect]
     Indication: DRUG USE FOR UNKNOWN INDICATION
     Route: 058
     Dates: start: 20070317
  3. EUPRESSYL                          /00631801/ [Suspect]
     Indication: DRUG USE FOR UNKNOWN INDICATION
     Route: 042
     Dates: start: 20070317, end: 20070320
  4. VENTOLINE                          /00139501/ [Suspect]
     Indication: DRUG USE FOR UNKNOWN INDICATION
     Route: 055
     Dates: start: 20070317, end: 20070320
  5. AUGMENTIN [Suspect]
     Indication: DRUG USE FOR UNKNOWN INDICATION
     Route: 042
     Dates: start: 20070317, end: 20070320
  6. DIGOXIN [Suspect]
     Indication: DRUG USE FOR UNKNOWN INDICATION
     Route: 042
     Dates: start: 20070317, end: 20070320

REACTIONS (4)
  - CEREBRAL ISCHAEMIA [None]
  - COMA [None]
  - NERVOUS SYSTEM DISORDER [None]
  - PNEUMONITIS [None]
